FAERS Safety Report 8108993-6 (Version None)
Quarter: 2012Q1

REPORT INFORMATION
  Report Type: 
  Country: None (occurrence: None)
  Receive Date: 20120202
  Receipt Date: 20120106
  Transmission Date: 20120608
  Serious: No
  Sender: FDA-Public Use
  Company Number: US-AMGEN-USASP2012000903

PATIENT
  Sex: Male

DRUGS (1)
  1. ENBREL [Suspect]
     Indication: INFLAMMATION
     Dosage: 50 MG, QWK
     Dates: start: 20111026, end: 20111224

REACTIONS (4)
  - NECK PAIN [None]
  - MUSCULOSKELETAL PAIN [None]
  - BACK PAIN [None]
  - JOINT SWELLING [None]
